FAERS Safety Report 25228416 (Version 1)
Quarter: 2025Q2

REPORT INFORMATION
  Report Type: Spontaneous
  Country: US (occurrence: US)
  Receive Date: 20250423
  Receipt Date: 20250423
  Transmission Date: 20250716
  Serious: Yes (Hospitalization, Other)
  Sender: SANDOZ
  Company Number: US-SANDOZ-SDZ2025US024329

PATIENT
  Age: 61 Year
  Sex: Male

DRUGS (1)
  1. HYRIMOZ [Suspect]
     Active Substance: ADALIMUMAB-ADAZ
     Indication: Rheumatoid arthritis
     Dosage: 80 MG, Q2W
     Route: 058
     Dates: start: 20240823

REACTIONS (1)
  - Shoulder operation [Not Recovered/Not Resolved]

NARRATIVE: CASE EVENT DATE: 20250305
